FAERS Safety Report 10657713 (Version 1)
Quarter: 2014Q4

REPORT INFORMATION
  Report Type: Spontaneous
  Country: US (occurrence: US)
  Receive Date: 20141217
  Receipt Date: 20141217
  Transmission Date: 20150529
  Serious: No
  Sender: FDA-Public Use
  Company Number: US-GLAXOSMITHKLINE-A1054759A

PATIENT

DRUGS (1)
  1. VOTRIENT [Suspect]
     Active Substance: PAZOPANIB HYDROCHLORIDE
     Indication: SOFT TISSUE SARCOMA
     Dosage: 200 MG TABLET AT UNKNOWN DOSING
     Route: 065

REACTIONS (5)
  - Feeling abnormal [Unknown]
  - Lacrimation increased [Unknown]
  - Gastroenteritis viral [Unknown]
  - Vomiting [Unknown]
  - Abdominal discomfort [Unknown]
